FAERS Safety Report 18550041 (Version 3)
Quarter: 2021Q1

REPORT INFORMATION
  Report Type: Spontaneous
  Country: US (occurrence: US)
  Receive Date: 20201126
  Receipt Date: 20210103
  Transmission Date: 20210419
  Serious: No
  Sender: FDA-Public Use
  Company Number: US-JNJFOC-20201130651

PATIENT
  Age: 48 Year
  Sex: Male

DRUGS (2)
  1. SILODOSIN. [Concomitant]
     Active Substance: SILODOSIN
     Indication: PROSTATOMEGALY
     Route: 065
     Dates: start: 20201001
  2. MENS ROGAINE EXTRA STRENGTH [Suspect]
     Active Substance: MINOXIDIL
     Indication: ALOPECIA
     Dosage: SEVERAL DROPS LETS
     Route: 061
     Dates: start: 2020, end: 20200830

REACTIONS (5)
  - Alopecia [Recovered/Resolved]
  - Application site pruritus [Recovered/Resolved]
  - Expired product administered [Unknown]
  - Incorrect dose administered [Unknown]
  - Discomfort [Recovered/Resolved]

NARRATIVE: CASE EVENT DATE: 2020
